FAERS Safety Report 24829346 (Version 4)
Quarter: 2025Q3

REPORT INFORMATION
  Report Type: Spontaneous
  Country: US (occurrence: US)
  Receive Date: 20250110
  Receipt Date: 20250804
  Transmission Date: 20251020
  Serious: Yes (Life-Threatening, Hospitalization, Other)
  Sender: ALEXION PHARMACEUTICALS
  Company Number: US-ASTRAZENECA-202412GLO021540US

PATIENT
  Age: 86 Year
  Sex: Female
  Weight: 87.5 kg

DRUGS (6)
  1. TRUQAP [Suspect]
     Active Substance: CAPIVASERTIB
     Indication: Breast cancer
     Dosage: 400 MILLIGRAM, BID
     Dates: start: 20240927, end: 20241013
  2. FULVESTRANT [Suspect]
     Active Substance: FULVESTRANT
     Route: 065
  3. FULVESTRANT [Suspect]
     Active Substance: FULVESTRANT
  4. APIXABAN [Concomitant]
     Active Substance: APIXABAN
  5. BUMETANIDE [Concomitant]
     Active Substance: BUMETANIDE
  6. CETIRIZINE [Concomitant]
     Active Substance: CETIRIZINE HYDROCHLORIDE

REACTIONS (18)
  - Hyperglycaemic hyperosmolar nonketotic syndrome [Unknown]
  - Hyperglycaemia [Recovering/Resolving]
  - Pulmonary hypertension [Unknown]
  - Delirium [Unknown]
  - Cardiac failure congestive [Unknown]
  - Anaphylactic reaction [Unknown]
  - Altered state of consciousness [Unknown]
  - Presyncope [Unknown]
  - Nausea [Unknown]
  - Diarrhoea [Unknown]
  - Rash erythematous [Unknown]
  - Malaise [Unknown]
  - Mucosal disorder [Unknown]
  - Oxygen saturation decreased [Unknown]
  - Hypotension [Unknown]
  - Bradycardia [Unknown]
  - Ventricular dysfunction [Unknown]
  - Dehydration [Unknown]

NARRATIVE: CASE EVENT DATE: 20241001
